FAERS Safety Report 7992872 (Version 3)
Quarter: 2013Q2

REPORT INFORMATION
  Report Type: Report from Study
  Country: NL (occurrence: NL)
  Receive Date: 20110615
  Receipt Date: 20130426
  Transmission Date: 20140414
  Serious: Yes (Hospitalization, Other)
  Sender: FDA-Public Use
  Company Number: NL-ABBOTT-11P-114-0725051-00

PATIENT
  Age: 70 Year
  Sex: Male
  Weight: 83 kg

DRUGS (9)
  1. LUCRIN 30 MG [Suspect]
     Indication: PROSTATE CANCER
     Route: 058
     Dates: start: 20100517
  2. ACETYLSALICYLIC ACID [Concomitant]
     Indication: ANGINA PECTORIS
     Dates: start: 2001
  3. EZETIMIB [Concomitant]
     Indication: BLOOD CHOLESTEROL INCREASED
     Route: 048
     Dates: start: 2001
  4. IRBESARTAN [Concomitant]
     Indication: HYPERTENSION
     Route: 048
     Dates: start: 2001
  5. ISOSORBIDEMONONITRATE [Concomitant]
     Indication: HYPERTENSION
     Route: 048
     Dates: start: 2001
  6. METOPROLOL TARTRATE [Concomitant]
     Indication: HYPERTENSION
     Route: 048
     Dates: start: 2001
  7. NIFEDIPINE [Concomitant]
     Indication: ANGINA PECTORIS
     Route: 048
     Dates: start: 2001
  8. NITROGLYCERINE [Concomitant]
     Indication: ANGINA PECTORIS
     Route: 060
     Dates: start: 2006
  9. ROSUVASTATINE [Concomitant]
     Indication: BLOOD CHOLESTEROL INCREASED
     Route: 048
     Dates: start: 2001

REACTIONS (4)
  - Lymphadenectomy [Recovered/Resolved]
  - Injection site induration [Recovered/Resolved]
  - Metastases to bone [Not Recovered/Not Resolved]
  - Pain [Not Recovered/Not Resolved]
